FAERS Safety Report 6084805-X (Version None)
Quarter: 2009Q1

REPORT INFORMATION
  Report Type: 
  Country: None (occurrence: None)
  Receive Date: 20090218
  Receipt Date: 20090209
  Transmission Date: 20090719
  Serious: Yes (Hospitalization, Other)
  Sender: FDA-Public Use
  Company Number: TPA2009A00013

PATIENT
  Age: 70 Year
  Sex: Female
  Weight: 86.1834 kg

DRUGS (11)
  1. ACTOS [Suspect]
     Indication: TYPE 2 DIABETES MELLITUS
     Dosage: 15 MG, 1 IN 1 D, PER ORAL
     Route: 048
     Dates: start: 20050105
  2. ACTOS [Suspect]
     Indication: TYPE 2 DIABETES MELLITUS
     Dosage: 15 MG, 1 IN 1 D, PER ORAL
     Route: 048
     Dates: start: 20070502
  3. PREDNISONE TAB [Concomitant]
  4. LABETALOL HCL [Concomitant]
  5. GLIPIZIDE [Concomitant]
  6. CLONAZEPAM [Concomitant]
  7. DYAZIDE [Concomitant]
  8. MOBIC [Concomitant]
  9. EFFEXOR XR [Concomitant]
  10. FERROUS SULFATE TAB [Concomitant]
  11. GABAPENTIN (GABAPENTIN) (CAPSULES) [Concomitant]

REACTIONS (6)
  - COUGH [None]
  - FALL [None]
  - FRACTURED COCCYX [None]
  - LOWER LIMB FRACTURE [None]
  - SINUS DISORDER [None]
  - SPINAL FRACTURE [None]
